FAERS Safety Report 11135708 (Version 1)
Quarter: 2015Q2

REPORT INFORMATION
  Report Type: Spontaneous
  Country: SI (occurrence: SI)
  Receive Date: 20150526
  Receipt Date: 20150526
  Transmission Date: 20150821
  Serious: Yes (Hospitalization)
  Sender: FDA-Public Use
  Company Number: SI-PFIZER INC-2015172650

PATIENT
  Sex: Male

DRUGS (3)
  1. OKSITOCINS [Concomitant]
     Dosage: HIGH DOSES
  2. LORAM [Concomitant]
     Dosage: IN THE EVENING
  3. LYRICA [Suspect]
     Active Substance: PREGABALIN
     Dosage: 25 MG, 2X/DAY
     Dates: start: 201505

REACTIONS (4)
  - Hypotension [Recovered/Resolved]
  - Respiratory rate decreased [Recovered/Resolved]
  - Coma [Recovered/Resolved]
  - Oxygen saturation decreased [Recovered/Resolved]

NARRATIVE: CASE EVENT DATE: 20150513
